FAERS Safety Report 9895408 (Version 1)
Quarter: 2014Q1

REPORT INFORMATION
  Report Type: Spontaneous
  Country: US (occurrence: US)
  Receive Date: 20140213
  Receipt Date: 20140213
  Transmission Date: 20141002
  Serious: No
  Sender: FDA-Public Use
  Company Number: US-BRISTOL-MYERS SQUIBB COMPANY-17359175

PATIENT
  Age: 47 Year
  Sex: Female
  Weight: 151.02 kg

DRUGS (11)
  1. ABATACEPT SUBQ INJECTION 125MG/ML [Suspect]
     Route: 058
  2. PLAQUENIL [Concomitant]
     Dosage: TAB
     Route: 048
  3. PREDNISONE [Concomitant]
     Dosage: TAB
     Route: 048
  4. METHOTREXATE [Concomitant]
     Dosage: TAB
     Route: 048
  5. FOLIC ACID [Concomitant]
     Dosage: TAB
     Route: 048
  6. PRILOSEC [Concomitant]
     Dosage: CAP
     Route: 048
  7. LEXAPRO [Concomitant]
     Dosage: TAB
     Route: 048
  8. VITAMIN B [Concomitant]
     Dosage: CAP
     Route: 048
  9. GLUCOSAMINE [Concomitant]
     Dosage: CAP
  10. CHONDROITIN [Concomitant]
     Route: 048
  11. VITAMIN D [Concomitant]
     Dosage: 1DF=400 UNITS,TAB
     Route: 048

REACTIONS (2)
  - Injection site reaction [Unknown]
  - Contusion [Unknown]
